FAERS Safety Report 24961649 (Version 6)
Quarter: 2025Q2

REPORT INFORMATION
  Report Type: Spontaneous
  Country: US (occurrence: US)
  Receive Date: 20250212
  Receipt Date: 20250617
  Transmission Date: 20250716
  Serious: Yes (Hospitalization, Other)
  Sender: BRISTOL-MYERS SQUIBB COMPANY
  Company Number: US-BRISTOL-MYERS SQUIBB COMPANY-2025-018940

PATIENT
  Age: 78 Year
  Sex: Female

DRUGS (4)
  1. LENALIDOMIDE [Suspect]
     Active Substance: LENALIDOMIDE
     Indication: Plasma protein metabolism disorder
     Dosage: TAKE 1 CAPSULE BY MOUTH WHOLE WITH WATER ONCE DAILY. DO NOT BREAK, CHEW, OR OPEN
     Route: 048
  2. LENALIDOMIDE [Suspect]
     Active Substance: LENALIDOMIDE
     Dosage: TAKE 1 CAPSULE BY MOUTH EVERY DAY FOR 21 DAYS ON, FOLLOWED BY 7 DAYS OF REST FOR 28 DAY CYCLE
     Route: 048
  3. LENALIDOMIDE [Suspect]
     Active Substance: LENALIDOMIDE
     Dosage: TAKE 1 CAPSULE BY MOUTH EVERY DAY FOR 21 DAYS ON, FOLLOWED BY 7 DAYS OF REST FOR 28 DAY CYCLE
     Route: 048
  4. LENALIDOMIDE [Suspect]
     Active Substance: LENALIDOMIDE
     Dosage: TAKE 1 WHOLE CAPSULE BY MOUTH DAILY WITH WATER. DO NOT BREAK, CHEW OR OPEN
     Route: 048

REACTIONS (14)
  - Constipation [Not Recovered/Not Resolved]
  - Decreased appetite [Not Recovered/Not Resolved]
  - Fatigue [Not Recovered/Not Resolved]
  - Vestibular neuronitis [Not Recovered/Not Resolved]
  - Product dose omission issue [Unknown]
  - Gastrointestinal inflammation [Recovering/Resolving]
  - Colitis [Recovering/Resolving]
  - Dehydration [Recovering/Resolving]
  - Rash [Recovering/Resolving]
  - Urticaria [Unknown]
  - Herpes zoster [Unknown]
  - Blister [Unknown]
  - Gastrointestinal disorder [Not Recovered/Not Resolved]
  - Abdominal discomfort [Not Recovered/Not Resolved]

NARRATIVE: CASE EVENT DATE: 20250301
